FAERS Safety Report 8164568-4 (Version None)
Quarter: 2012Q1

REPORT INFORMATION
  Report Type: 
  Country: None (occurrence: None)
  Receive Date: 20120226
  Receipt Date: 20120215
  Transmission Date: 20120608
  Serious: Yes (Death, Hospitalization, Other)
  Sender: FDA-Public Use
  Company Number: FR-BRISTOL-MYERS SQUIBB COMPANY-16402570

PATIENT
  Age: 83 Year
  Sex: Male

DRUGS (11)
  1. COUMADIN [Suspect]
     Indication: AORTIC VALVE REPLACEMENT
     Dosage: 1 DF: 4MG OR 5MG 1DAY/2 IN ALTERNATION IN THE EVE
     Route: 048
     Dates: end: 20100110
  2. COUMADIN [Suspect]
     Indication: ATRIAL FIBRILLATION
     Dosage: 1 DF: 4MG OR 5MG 1DAY/2 IN ALTERNATION IN THE EVE
     Route: 048
     Dates: end: 20100110
  3. ACETAMINOPHEN [Concomitant]
  4. RAMIPRIL [Concomitant]
     Dosage: 1 DF: 2.5 UNIT NOS
  5. DEXERYL [Concomitant]
  6. ZOLPIDEM [Concomitant]
     Dosage: 1 DF: 1 TABS/BEDTIME STILNOX 10
  7. TRIMEPRAZINE TARTRATE [Concomitant]
     Dosage: IN EVE
  8. DEBRIDAT [Concomitant]
  9. LEUPROLIDE ACETATE [Concomitant]
     Dosage: 1 DF: ONE INJ 11.25
  10. ATARAX [Concomitant]
     Dosage: 1 DF: TWO TABS IN THE MOR AND 1 TABS AT LUNCH ATARAX 25
  11. LASIX [Concomitant]
     Dosage: 1 DF: 1 QUARTER TAB IN THE MORNING

REACTIONS (5)
  - ANAEMIA [None]
  - ACUTE CORONARY SYNDROME [None]
  - MELAENA [None]
  - CARDIAC FAILURE [None]
  - RECTAL HAEMORRHAGE [None]
